FAERS Safety Report 8950571 (Version 1)
Quarter: 2012Q4

REPORT INFORMATION
  Report Type: 
  Country: NL (occurrence: NL)
  Receive Date: 20121207
  Receipt Date: 20121207
  Transmission Date: 20130627
  Serious: Yes (Other)
  Sender: FDA-Public Use
  Company Number: NL-BAYER-2012-123205

PATIENT
  Age: 32 Year
  Sex: Female
  Weight: 58 kg

DRUGS (4)
  1. MIRENA [Suspect]
     Dosage: 20 mcg/24hr, CONT
     Route: 015
     Dates: start: 20120209, end: 20121105
  2. QVAR [Concomitant]
  3. SEREVENT [Concomitant]
  4. VENTOLIN [Concomitant]

REACTIONS (4)
  - Drug ineffective [None]
  - Ectopic pregnancy [None]
  - Gestational trophoblastic detachment [None]
  - Abortion of ectopic pregnancy [None]
